APPROVED DRUG PRODUCT: IMCIVREE
Active Ingredient: SETMELANOTIDE ACETATE
Strength: EQ 10MG BASE/ML (EQ 10MG BASE/ML)
Dosage Form/Route: SOLUTION;SUBCUTANEOUS
Application: N213793 | Product #001
Applicant: RHYTHM PHARMACEUTICALS INC
Approved: Nov 25, 2020 | RLD: Yes | RS: Yes | Type: RX

PATENTS:
Patent 11129869 | Expires: Jul 4, 2034
Patent 9458195 | Expires: Oct 13, 2027
Patent 8039435 | Expires: Aug 21, 2032

EXCLUSIVITY:
Code: NPP | Date: Dec 20, 2027
Code: ODE-336 | Date: Nov 25, 2027
Code: ODE-402 | Date: Jun 16, 2029
Code: ODE-508 | Date: Dec 20, 2031
Code: ODE-509 | Date: Dec 20, 2031